FAERS Safety Report 12659015 (Version 2)
Quarter: 2016Q4

REPORT INFORMATION
  Report Type: Report from Study
  Country: KR (occurrence: KR)
  Receive Date: 20160817
  Receipt Date: 20161014
  Transmission Date: 20170207
  Serious: Yes (Hospitalization)
  Sender: FDA-Public Use
  Company Number: KR-CELLTRION INC.-2015KR011470

PATIENT

DRUGS (10)
  1. FOLIC ACID. [Concomitant]
     Active Substance: FOLIC ACID
     Indication: RHEUMATOID ARTHRITIS
     Dosage: 1 DF, DAILY
     Route: 048
     Dates: start: 20140128
  2. REMSIMA [Suspect]
     Active Substance: INFLIXIMAB
     Indication: RHEUMATOID ARTHRITIS
     Dosage: 200 MG, ONCE IN 8 WEEKS
     Route: 042
     Dates: start: 20140804, end: 20140804
  3. MAXNOPHEN [Concomitant]
     Indication: RHEUMATOID ARTHRITIS
     Dosage: 1 DF, BID
     Route: 048
     Dates: start: 20160119, end: 20160223
  4. ULTRACET ER SEMI [Concomitant]
     Indication: RHEUMATOID ARTHRITIS
     Dosage: 1 DF, BID
     Route: 048
     Dates: start: 20150428, end: 20160118
  5. MUCOSTA [Concomitant]
     Active Substance: REBAMIPIDE
     Indication: RHEUMATOID ARTHRITIS
     Dosage: 100 MG, BID
     Route: 048
     Dates: start: 20140128
  6. METHYLON                           /00049601/ [Concomitant]
     Indication: RHEUMATOID ARTHRITIS
     Dosage: 4 MG, DAILY
     Route: 048
     Dates: start: 20160119
  7. CELEBREX [Concomitant]
     Active Substance: CELECOXIB
     Indication: RHEUMATOID ARTHRITIS
     Dosage: 200 MG, BID
     Route: 048
     Dates: start: 20141124
  8. METHYLON                           /00049601/ [Concomitant]
     Dosage: 2 MG, DAILY
     Route: 048
     Dates: start: 20160312, end: 20160417
  9. METHOTREXATE. [Concomitant]
     Active Substance: METHOTREXATE
     Indication: RHEUMATOID ARTHRITIS
     Dosage: 15 MG, 1/WEEK
     Route: 048
     Dates: start: 20140227, end: 20160223
  10. METHOTREXATE. [Concomitant]
     Active Substance: METHOTREXATE
     Dosage: 12.5 MG, 1/WEEK
     Route: 048
     Dates: start: 20160312, end: 20160920

REACTIONS (2)
  - Arthritis bacterial [Recovered/Resolved]
  - Meniscus injury [Recovered/Resolved]

NARRATIVE: CASE EVENT DATE: 20151108
